FAERS Safety Report 6032154-8 (Version None)
Quarter: 2009Q1

REPORT INFORMATION
  Report Type: 
  Country: None (occurrence: None)
  Receive Date: 20090107
  Receipt Date: 20081223
  Transmission Date: 20090719
  Serious: Yes (Other)
  Sender: FDA-Public Use
  Company Number: 2008003342

PATIENT
  Age: 70 Year
  Sex: Male

DRUGS (1)
  1. TARCEVA [Suspect]
     Indication: LUNG NEOPLASM MALIGNANT
     Dosage: QD, ORAL
     Route: 048

REACTIONS (4)
  - ABDOMINAL PAIN [None]
  - FLATULENCE [None]
  - HERNIA [None]
  - NAUSEA [None]
